FAERS Safety Report 23082393 (Version 1)
Quarter: 2023Q4

REPORT INFORMATION
  Report Type: Spontaneous
  Country: RS (occurrence: RS)
  Receive Date: 20231019
  Receipt Date: 20231019
  Transmission Date: 20240110
  Serious: Yes (Other)
  Sender: FDA-Public Use
  Company Number: RS-JNJFOC-20231021865

PATIENT
  Sex: Male

DRUGS (1)
  1. IMBRUVICA [Suspect]
     Active Substance: IBRUTINIB
     Indication: Mantle cell lymphoma
     Route: 048
     Dates: start: 202206

REACTIONS (6)
  - Leukocytosis [Recovered/Resolved]
  - Rash [Unknown]
  - Basal cell carcinoma [Unknown]
  - Left ventricular hypertrophy [Unknown]
  - Hyperbilirubinaemia [Unknown]
  - Left atrial hypertrophy [Unknown]

NARRATIVE: CASE EVENT DATE: 20220727
